FAERS Safety Report 10179444 (Version 1)
Quarter: 2014Q2

REPORT INFORMATION
  Report Type: Spontaneous
  Country: US (occurrence: None)
  Receive Date: 20140416
  Receipt Date: 20140416
  Transmission Date: 20141212
  Serious: Yes (Other)
  Sender: FDA-Public Use
  Company Number: 163-POMAL-14021166

PATIENT
  Age: 85 Year
  Sex: Male
  Weight: 50.8 kg

DRUGS (5)
  1. POMALYST (POMALIDOMIDE) 1 MILLIGRAM CAPSULES [Suspect]
     Indication: PLASMA CELL MYELOMA
     Dosage: M-W-F
     Route: 048
     Dates: start: 20130328
  2. ASPIRIN (ACETYLSALICYLIC ACID) [Concomitant]
  3. MULTIVITAMINS (MULTIVITAMINS) [Concomitant]
  4. GARLIC OIL (ALLIUM SATIVUM OIL) [Concomitant]
  5. DEXAMETHASONE (DEXAMETHASONE) [Concomitant]

REACTIONS (3)
  - Epistaxis [None]
  - Thrombocytopenia [None]
  - Dyspnoea [None]
